FAERS Safety Report 12301070 (Version 16)
Quarter: 2019Q4

REPORT INFORMATION
  Report Type: Report from Study
  Country: US (occurrence: US)
  Receive Date: 20160425
  Receipt Date: 20191216
  Transmission Date: 20200122
  Serious: Yes (Hospitalization, Other)
  Sender: FDA-Public Use
  Company Number: US-ACTELION-A-NJ2016-135003

PATIENT
  Age: 60 Year
  Sex: Female
  Weight: 70.3 kg

DRUGS (5)
  1. OPSUMIT [Suspect]
     Active Substance: MACITENTAN
     Dosage: 10 MG, QD
     Route: 048
  2. ADCIRCA [Concomitant]
     Active Substance: TADALAFIL
  3. OPSUMIT [Suspect]
     Active Substance: MACITENTAN
     Indication: PULMONARY ARTERIAL HYPERTENSION
     Dosage: 10 MG, QD
     Route: 048
     Dates: start: 20150805
  4. WARFARIN [Concomitant]
     Active Substance: WARFARIN
  5. OXYGEN. [Concomitant]
     Active Substance: OXYGEN

REACTIONS (32)
  - Asthma [Unknown]
  - Headache [Unknown]
  - Seizure [Unknown]
  - Rotator cuff repair [Unknown]
  - Back pain [Unknown]
  - Hypersomnia [Unknown]
  - Dizziness postural [Unknown]
  - Rotator cuff syndrome [Unknown]
  - Extrasystoles [Unknown]
  - Phlebitis [Unknown]
  - Syncope [Unknown]
  - Memory impairment [Unknown]
  - Chest pain [Unknown]
  - Malaise [Unknown]
  - Fall [Unknown]
  - Kidney infection [Unknown]
  - Loss of consciousness [Unknown]
  - Pneumonia [Unknown]
  - Pulmonary embolism [Unknown]
  - Intervertebral disc protrusion [Unknown]
  - Hypotension [Unknown]
  - Road traffic accident [Unknown]
  - Limb injury [Unknown]
  - Dyspnoea [Unknown]
  - Thrombosis [Unknown]
  - Transient ischaemic attack [Unknown]
  - Pulmonary oedema [Unknown]
  - Nausea [Unknown]
  - Weight decreased [Unknown]
  - Sluggishness [Unknown]
  - Nerve compression [Unknown]
  - Product dose omission [Unknown]

NARRATIVE: CASE EVENT DATE: 20170511
